FAERS Safety Report 13285012 (Version 1)
Quarter: 2017Q1

REPORT INFORMATION
  Report Type: Spontaneous
  Country: IN (occurrence: IN)
  Receive Date: 20170301
  Receipt Date: 20170301
  Transmission Date: 20170428
  Serious: Yes (Other)
  Sender: FDA-Public Use
  Company Number: IN-MYLANLABS-2017M1012242

PATIENT

DRUGS (2)
  1. VINORELBINE [Suspect]
     Active Substance: VINORELBINE\VINORELBINE TARTRATE
     Indication: BREAST CANCER METASTATIC
     Dosage: 30 MG/M2
     Route: 065
  2. CAPECITABINE. [Concomitant]
     Active Substance: CAPECITABINE
     Indication: BREAST CANCER METASTATIC
     Dosage: 2000 MG/M2
     Route: 065

REACTIONS (4)
  - Skin lesion [Recovering/Resolving]
  - Ulcer [Recovering/Resolving]
  - Blister [Recovering/Resolving]
  - Implant site extravasation [Recovering/Resolving]
